FAERS Safety Report 22875809 (Version 4)
Quarter: 2023Q4

REPORT INFORMATION
  Report Type: Report from Study
  Country: CN (occurrence: None)
  Receive Date: 20230829
  Receipt Date: 20231129
  Transmission Date: 20240110
  Serious: Yes (Hospitalization)
  Sender: FDA-Public Use
  Company Number: CN-ROCHE-3410037

PATIENT
  Age: 66 Year
  Sex: Female
  Weight: 70 kg

DRUGS (14)
  1. PERTUZUMAB [Suspect]
     Active Substance: PERTUZUMAB
     Indication: Breast cancer
     Route: 041
     Dates: start: 20230605, end: 20230605
  2. PERTUZUMAB [Suspect]
     Active Substance: PERTUZUMAB
     Route: 041
     Dates: start: 20230629
  3. VITAMIN C [Concomitant]
     Active Substance: ASCORBIC ACID
     Route: 041
     Dates: start: 20231003, end: 20231006
  4. METOCLOPRAMIDE HYDROCHLORIDE [Concomitant]
     Active Substance: METOCLOPRAMIDE HYDROCHLORIDE
     Route: 041
     Dates: start: 20231003, end: 20231006
  5. ERYTHROPOIETIN [Concomitant]
     Active Substance: ERYTHROPOIETIN
     Indication: Anaemia
     Route: 042
     Dates: start: 20231003, end: 20231006
  6. ERYTHROPOIETIN [Concomitant]
     Active Substance: ERYTHROPOIETIN
     Indication: Platelet count decreased
     Route: 041
     Dates: start: 20231003, end: 20231006
  7. ERYTHROPOIETIN [Concomitant]
     Active Substance: ERYTHROPOIETIN
     Route: 041
     Dates: start: 20231003, end: 20231006
  8. CEFTAZIDIME [Concomitant]
     Active Substance: CEFTAZIDIME
     Dates: start: 20231003, end: 20231006
  9. LIDOCAINE HYDROCHLORIDE [Concomitant]
     Active Substance: DEXTROSE MONOHYDRATE\EPINEPHRINE\EPINEPHRINE BITARTRATE\LIDOCAINE\LIDOCAINE HYDROCHLORIDE\LIDOCAINE
     Indication: Mucosal inflammation
     Route: 042
     Dates: start: 20231003, end: 20231006
  10. POTASSIUM CHLORIDE [Concomitant]
     Active Substance: POTASSIUM CHLORIDE
     Indication: Hypokalaemia
     Route: 041
     Dates: start: 20231004, end: 20231006
  11. DEXAMETHASONE SODIUM PHOSPHATE [Concomitant]
     Active Substance: DEXAMETHASONE PHOSPHATE\DEXAMETHASONE SODIUM PHOSPHATE
     Indication: Vomiting
     Route: 041
     Dates: start: 20231004, end: 20231006
  12. LEUCOGEN [Concomitant]
     Active Substance: LEUCOGEN
     Indication: Anaemia
     Route: 048
     Dates: start: 20231003, end: 20231007
  13. ESOMEPRAZOLE SODIUM [Concomitant]
     Active Substance: ESOMEPRAZOLE SODIUM
     Route: 042
     Dates: start: 20231003, end: 20231006
  14. VITAMIN B12 [Concomitant]
     Active Substance: CYANOCOBALAMIN
     Route: 041
     Dates: start: 20231003, end: 20231006

REACTIONS (2)
  - Myelosuppression [Recovered/Resolved with Sequelae]
  - Neutrophil count decreased [Recovered/Resolved]

NARRATIVE: CASE EVENT DATE: 20230731
